FAERS Safety Report 5130744-8 (Version None)
Quarter: 2006Q4

REPORT INFORMATION
  Report Type: 
  Country: None (occurrence: None)
  Receive Date: 20061017
  Receipt Date: 20061017
  Transmission Date: 20070319
  Serious: Yes (Hospitalization)
  Sender: FDA-Public Use
  Company Number: None

PATIENT
  Age: 4 Year
  Sex: Male

DRUGS (2)
  1. FOCALIN XR [Suspect]
     Indication: ATTENTION DEFICIT/HYPERACTIVITY DISORDER
     Dosage: 10MG EVERY MORNING PO
     Route: 048
     Dates: start: 20060606, end: 20060607
  2. FOCALIN XR [Suspect]
     Indication: ATTENTION DEFICIT/HYPERACTIVITY DISORDER
     Dosage: 10MG EVERY MORNING PO
     Route: 048
     Dates: start: 20060623

REACTIONS (3)
  - EYE ROLLING [None]
  - MUSCLE TWITCHING [None]
  - TACHYCARDIA [None]
